FAERS Safety Report 9234237 (Version 2)
Quarter: 2013Q2

REPORT INFORMATION
  Report Type: Spontaneous
  Country: US (occurrence: US)
  Receive Date: 20130416
  Receipt Date: 20130419
  Transmission Date: 20140414
  Serious: Yes (Death)
  Sender: FDA-Public Use
  Company Number: US-GILEAD-2013-0073387

PATIENT
  Sex: Female

DRUGS (2)
  1. LETAIRIS [Suspect]
     Indication: PULMONARY HYPERTENSION
     Dosage: 10 MG, QD
     Dates: start: 20080410
  2. LETAIRIS [Suspect]
     Indication: SCLERODERMA

REACTIONS (3)
  - Lung neoplasm malignant [Fatal]
  - Pulmonary arterial hypertension [Fatal]
  - Respiratory failure [Fatal]
